FAERS Safety Report 6903688-6 (Version None)
Quarter: 2010Q3

REPORT INFORMATION
  Report Type: 
  Country: None (occurrence: None)
  Receive Date: 20100803
  Receipt Date: 20081113
  Transmission Date: 20110219
  Serious: Yes (Hospitalization, Other)
  Sender: FDA-Public Use
  Company Number: US-PFIZER INC-2008096235

PATIENT
  Sex: Female
  Weight: 73.5 kg

DRUGS (5)
  1. LYRICA [Suspect]
     Indication: FIBROMYALGIA
     Dates: start: 20060101
  2. LYRICA [Suspect]
     Indication: ANXIETY
  3. SEROQUEL [Concomitant]
  4. LORAZEPAM [Concomitant]
  5. NEXIUM [Concomitant]
     Indication: GASTROOESOPHAGEAL REFLUX DISEASE

REACTIONS (8)
  - ANKLE FRACTURE [None]
  - FALL [None]
  - HAEMOGLOBIN DECREASED [None]
  - LOWER LIMB FRACTURE [None]
  - NAUSEA [None]
  - OEDEMA [None]
  - TENDON RUPTURE [None]
  - WEIGHT DECREASED [None]
